FAERS Safety Report 4313298-5 (Version None)
Quarter: 2004Q1

REPORT INFORMATION
  Report Type: 
  Country: None (occurrence: None)
  Receive Date: 20040304
  Receipt Date: 20031223
  Transmission Date: 20041129
  Serious: Yes (Death)
  Sender: FDA-Public Use
  Company Number: 6989

PATIENT
  Age: 72 Year
  Sex: Female

DRUGS (9)
  1. AMIODARONE [Suspect]
     Indication: ATRIAL FIBRILLATION
     Dosage: 1200 MG TOTAL/200 MG TIDIV/PO
     Route: 042
     Dates: start: 20031122, end: 20031123
  2. AMIODARONE [Suspect]
     Indication: ATRIAL FIBRILLATION
     Dosage: 1200 MG TOTAL/200 MG TIDIV/PO
     Route: 042
     Dates: start: 20031123, end: 20031125
  3. FLUDROCORTISONE ACETATE [Concomitant]
  4. ATORVASTATIN [Concomitant]
  5. ASPIRIN [Concomitant]
  6. CORTISONE [Concomitant]
  7. INSULIN [Concomitant]
  8. METFORMIN HCL [Concomitant]
  9. TOLBUTAMIDE [Concomitant]

REACTIONS (9)
  - BONE MARROW DEPRESSION [None]
  - CARDIAC ARREST [None]
  - CARDIAC FAILURE [None]
  - HAEMOGLOBIN DECREASED [None]
  - HEPATIC FAILURE [None]
  - METABOLIC ACIDOSIS [None]
  - MULTI-ORGAN FAILURE [None]
  - RENAL FAILURE ACUTE [None]
  - WHITE BLOOD CELL COUNT DECREASED [None]
